FAERS Safety Report 4528781-7 (Version None)
Quarter: 2004Q4

REPORT INFORMATION
  Report Type: 
  Country: None (occurrence: None)
  Receive Date: 20041214
  Receipt Date: 20041203
  Transmission Date: 20050328
  Serious: Yes (Other)
  Sender: FDA-Public Use
  Company Number: FR-1999-024315

PATIENT
  Age: 1 Day
  Sex: Male
  Weight: 3.8 kg

DRUGS (1)
  1. MAGNEVIST [Suspect]
     Indication: NUCLEAR MAGNETIC RESONANCE IMAGING
     Dosage: UNK, 1 DOSE; TRANSPLACENTAL
     Route: 064
     Dates: start: 19980113, end: 19980113

REACTIONS (9)
  - BLOOD PRESSURE DECREASED [None]
  - CARDIOVASCULAR DISORDER [None]
  - DRUG EXPOSURE DURING PREGNANCY [None]
  - HEART RATE DECREASED [None]
  - HYPOGLYCAEMIA NEONATAL [None]
  - MATERNAL CONDITION AFFECTING FOETUS [None]
  - NEONATAL DISORDER [None]
  - NEONATAL TACHYPNOEA [None]
  - PALLOR [None]
